FAERS Safety Report 4557747-6 (Version None)
Quarter: 2005Q1

REPORT INFORMATION
  Report Type: 
  Country: None (occurrence: None)
  Receive Date: 20050103
  Receipt Date: 20040923
  Transmission Date: 20050727
  Serious: Yes (Other)
  Sender: FDA-Public Use
  Company Number: 2004UW16313

PATIENT
  Age: 58 Year
  Sex: Female
  Weight: 75.7507 kg

DRUGS (10)
  1. CRESTOR [Suspect]
     Indication: BLOOD CHOLESTEROL INCREASED
     Dosage: 10 MG DAILY PO
     Route: 048
     Dates: start: 20040528, end: 20040803
  2. CRESTOR [Suspect]
     Indication: DYSLIPIDAEMIA
     Dosage: 10 MG DAILY PO
     Route: 048
     Dates: start: 20040528, end: 20040803
  3. FOSAMAX [Concomitant]
  4. CLARINEX [Concomitant]
  5. DIOVAN [Concomitant]
  6. ALTACE [Concomitant]
  7. LUMIGAN [Concomitant]
  8. BLACK COHOSH [Concomitant]
  9. MULTI-VITAMINS [Concomitant]
  10. CALCIUM GLUCONATE [Concomitant]

REACTIONS (3)
  - ARTHRALGIA [None]
  - ASTHENIA [None]
  - SENSATION OF HEAVINESS [None]
